FAERS Safety Report 15032149 (Version 1)
Quarter: 2018Q2

REPORT INFORMATION
  Report Type: Spontaneous
  Country: AU (occurrence: AU)
  Receive Date: 20180619
  Receipt Date: 20180619
  Transmission Date: 20180711
  Serious: Yes (Other)
  Sender: FDA-Public Use
  Company Number: AU-009507513-1806AUS006240

PATIENT
  Age: 31 Year
  Sex: Female

DRUGS (10)
  1. ACTRAPID (INSULIN, NEUTRAL) [Concomitant]
  2. NITRAZEPAM [Concomitant]
     Active Substance: NITRAZEPAM
  3. METOCLOPRAMIDE HYDROCHLORIDE. [Concomitant]
     Active Substance: METOCLOPRAMIDE HYDROCHLORIDE
  4. NOVORAPID [Concomitant]
     Active Substance: INSULIN ASPART
  5. TEMOZOLOMIDE. [Suspect]
     Active Substance: TEMOZOLOMIDE
  6. PROTAPHANE [Concomitant]
     Active Substance: INSULIN HUMAN
  7. CAELYX [Suspect]
     Active Substance: DOXORUBICIN HYDROCHLORIDE
  8. ONDANSETRON HYDROCHLORIDE. [Concomitant]
     Active Substance: ONDANSETRON HYDROCHLORIDE
  9. LEVOTHYROXINE SODIUM. [Concomitant]
     Active Substance: LEVOTHYROXINE SODIUM
  10. DEXAMETHASONE. [Concomitant]
     Active Substance: DEXAMETHASONE

REACTIONS (8)
  - Epistaxis [Unknown]
  - Nausea [Unknown]
  - Thrombocytopenia [Unknown]
  - Vomiting [Unknown]
  - Otitis media [Unknown]
  - Sepsis [Unknown]
  - Neutropenia [Unknown]
  - Diarrhoea [Unknown]
